FAERS Safety Report 6204246-1 (Version None)
Quarter: 2009Q2

REPORT INFORMATION
  Report Type: 
  Country: None (occurrence: None)
  Receive Date: 20090521
  Receipt Date: 20090513
  Transmission Date: 20091009
  Serious: Yes (Hospitalization)
  Sender: FDA-Public Use
  Company Number: 2009SP000384

PATIENT
  Age: 75 Year
  Sex: Male
  Weight: 79.2 kg

DRUGS (15)
  1. TEMOZOLOMIDE [Suspect]
     Indication: METASTATIC MALIGNANT MELANOMA
     Dosage: PO; 150 MG;QD;PO;
     Route: 048
     Dates: start: 20081111, end: 20081115
  2. TEMOZOLOMIDE [Suspect]
     Indication: METASTATIC MALIGNANT MELANOMA
     Dosage: PO; 150 MG;QD;PO;
     Route: 048
     Dates: start: 20081216, end: 20081220
  3. ABT-888 (INVESTIGATIONAL DRUG) [Suspect]
     Indication: METASTATIC MALIGNANT MELANOMA
     Dosage: 40 MG;BID;PO; 40 MG;BID; PO
     Route: 048
     Dates: start: 20081111, end: 20081117
  4. ABT-888 (INVESTIGATIONAL DRUG) [Suspect]
     Indication: METASTATIC MALIGNANT MELANOMA
     Dosage: 40 MG;BID;PO; 40 MG;BID; PO
     Route: 048
     Dates: start: 20081216, end: 20081222
  5. MODURETIC (CON.) [Concomitant]
  6. GLUCOSAMINE (CON.) [Concomitant]
  7. ERGOCALCIFEROL (CON.) [Concomitant]
  8. SENNOSIDES (CON.) [Concomitant]
  9. IBUPROFEN (CON.) [Concomitant]
  10. CLINDAMYCIN PHOSPHATE (CON.) [Concomitant]
  11. TRAMADOL HYDROCHLORIDE (CON.) [Concomitant]
  12. PROCHLORPERAZINE EDISYLATE (CON.) [Concomitant]
  13. MYLANTA (CON.) [Concomitant]
  14. TRAMADOL (CON.) [Concomitant]
  15. ONDANSETRON (CON.) [Concomitant]

REACTIONS (7)
  - BACTERIA URINE IDENTIFIED [None]
  - BLOOD PRESSURE DIASTOLIC INCREASED [None]
  - CONSTIPATION [None]
  - DYSPEPSIA [None]
  - FEBRILE NEUTROPENIA [None]
  - INSOMNIA [None]
  - PNEUMONIA [None]
